FAERS Safety Report 6124669-9 (Version None)
Quarter: 2009Q1

REPORT INFORMATION
  Report Type: 
  Country: None (occurrence: None)
  Receive Date: 20090319
  Receipt Date: 20090205
  Transmission Date: 20090719
  Serious: Yes (Hospitalization)
  Sender: FDA-Public Use
  Company Number: US-PFIZER INC-2008005876

PATIENT
  Sex: Female
  Weight: 82.3 kg

DRUGS (22)
  1. DETROL LA [Suspect]
     Dosage: 4 MG, 1X/DAY
     Route: 048
     Dates: start: 20051011, end: 20080116
  2. LEXAPRO [Suspect]
     Dosage: 10 MG, 1X/DAY
     Route: 048
     Dates: start: 20071230, end: 20080116
  3. S,S-REBOXETINE [Suspect]
     Indication: DIABETIC NEUROPATHY
     Dosage: 1 MG, 1X/DAY
     Route: 048
     Dates: start: 20070717
  4. THIAMINE HCL [Concomitant]
     Route: 048
     Dates: start: 19870101
  5. FOLIC ACID [Concomitant]
     Dosage: QD
     Route: 048
     Dates: start: 19870101
  6. MULTI-VITAMINS [Concomitant]
     Dosage: 1,QD
     Route: 048
     Dates: start: 19870101
  7. LISINOPRIL [Concomitant]
     Dosage: 1,QD
     Route: 048
     Dates: start: 20020101
  8. VERAPAMIL [Concomitant]
     Dosage: 1,QD
     Route: 048
     Dates: start: 20071202, end: 20080116
  9. K-DUR [Concomitant]
     Route: 048
     Dates: start: 20050101
  10. MAGNESIUM OXIDE [Concomitant]
     Dosage: 2 TABS,BID
     Route: 048
     Dates: start: 20060101
  11. SYNTHROID [Concomitant]
     Dosage: QD
     Route: 048
     Dates: start: 20050101
  12. AMITIZA [Concomitant]
     Dosage: BID
     Route: 048
     Dates: start: 20071114
  13. CYANOCOBALAMIN [Concomitant]
     Dosage: QMO
     Route: 030
     Dates: start: 19870101, end: 20080116
  14. METOPROLOL TARTRATE [Concomitant]
     Dosage: 1,BID
     Route: 048
     Dates: start: 20080114, end: 20080116
  15. ASPIRIN [Concomitant]
     Dosage: QD
     Route: 048
     Dates: start: 20080114
  16. CELEBREX [Concomitant]
     Dosage: 1,QD
     Dates: start: 20071019
  17. PROTONIX [Concomitant]
     Dosage: 1,QD
     Dates: start: 20070830
  18. PREMARIN [Concomitant]
     Dosage: 1,QD
     Dates: start: 19910101
  19. TRAMADOL HCL [Concomitant]
     Dosage: 1,Q 6 HOURS PRN
     Dates: start: 20070101, end: 20080116
  20. TRAZODONE HCL [Concomitant]
     Dosage: 1,QHS
     Dates: start: 20071230, end: 20080116
  21. AMITRIPTYLINE [Concomitant]
     Dosage: 1,QPM
     Dates: start: 20030101, end: 20080116
  22. POTASSIUM CHLORIDE [Concomitant]
     Dosage: 1,QD
     Dates: start: 20050101

REACTIONS (3)
  - ELECTROCARDIOGRAM T WAVE INVERSION [None]
  - HYPOTENSION [None]
  - SINUS TACHYCARDIA [None]
